FAERS Safety Report 5274438-7 (Version None)
Quarter: 2007Q1

REPORT INFORMATION
  Report Type: 
  Country: None (occurrence: None)
  Receive Date: 20070320
  Receipt Date: 20070309
  Transmission Date: 20070707
  Serious: Yes (Other)
  Sender: FDA-Public Use
  Company Number: 238043

PATIENT
  Age: 82 Year
  Sex: Male

DRUGS (2)
  1. AVASTIN [Suspect]
     Indication: MACULAR DEGENERATION
     Dosage: 1.25 MG, SINGLE, INTRAVITREAL
     Dates: start: 20060321
  2. VISUDYNE [Suspect]
     Indication: MACULAR DEGENERATION
     Dosage: SINGLE
     Dates: start: 20060323

REACTIONS (3)
  - RETINAL TEAR [None]
  - VISUAL ACUITY REDUCED [None]
  - VITREOUS FLOATERS [None]
